FAERS Safety Report 7032296-4 (Version None)
Quarter: 2010Q4

REPORT INFORMATION
  Report Type: 
  Country: None (occurrence: None)
  Receive Date: 20101007
  Receipt Date: 20100826
  Transmission Date: 20110411
  Serious: No
  Sender: FDA-Public Use
  Company Number: A0877896A

PATIENT
  Age: 72 Year
  Sex: Female

DRUGS (9)
  1. REQUIP XL [Suspect]
     Indication: PARKINSON'S DISEASE
     Dosage: 2MG PER DAY
     Route: 048
  2. ROPINIROLE [Suspect]
  3. LODOSYN [Concomitant]
  4. CARBIDOPA [Concomitant]
  5. LEVODOPA [Concomitant]
  6. PLAVIX [Concomitant]
  7. SIMVASTATIN [Concomitant]
  8. ALPRAZOLAM [Concomitant]
  9. PROTONIX [Concomitant]

REACTIONS (2)
  - DRUG INEFFECTIVE [None]
  - SOMNOLENCE [None]
